FAERS Safety Report 11064740 (Version 3)
Quarter: 2015Q2

REPORT INFORMATION
  Report Type: Report from Study
  Country: US (occurrence: US)
  Receive Date: 20150424
  Receipt Date: 20150611
  Transmission Date: 20150821
  Serious: Yes (Other)
  Sender: FDA-Public Use
  Company Number: US-ACTELION-A-NJ2015-116659

PATIENT
  Age: 53 Year
  Sex: Male

DRUGS (3)
  1. ADCIRCA [Concomitant]
     Active Substance: TADALAFIL
  2. MACITENTAN [Suspect]
     Active Substance: MACITENTAN
     Dosage: UNK
     Route: 048
     Dates: start: 20150414
  3. MACITENTAN [Suspect]
     Active Substance: MACITENTAN
     Indication: PORTOPULMONARY HYPERTENSION
     Dosage: 10 MG, QD
     Route: 048
     Dates: end: 201504

REACTIONS (7)
  - Back pain [Unknown]
  - Transplant evaluation [Unknown]
  - Flank pain [Unknown]
  - Condition aggravated [Unknown]
  - Oedema peripheral [Unknown]
  - Cirrhosis alcoholic [Unknown]
  - Oedema [Unknown]
